FAERS Safety Report 13785774 (Version 1)
Quarter: 2017Q3

REPORT INFORMATION
  Report Type: Spontaneous
  Country: GB (occurrence: GB)
  Receive Date: 20170725
  Receipt Date: 20170725
  Transmission Date: 20171127
  Serious: Yes (Hospitalization)
  Sender: FDA-Public Use
  Company Number: GB-TEVA-787385ACC

PATIENT
  Age: 41 Year
  Sex: Female
  Weight: 70.76 kg

DRUGS (5)
  1. VITAMIN D [Concomitant]
     Active Substance: CHOLECALCIFEROL
  2. CITALOPRAM [Concomitant]
     Active Substance: CITALOPRAM HYDROBROMIDE
  3. ENBREL [Concomitant]
     Active Substance: ETANERCEPT
  4. METHOTREXATE SODIUM. [Suspect]
     Active Substance: METHOTREXATE SODIUM
     Indication: PSORIATIC ARTHROPATHY
     Route: 051
     Dates: start: 20160507, end: 20170219
  5. IRON [Concomitant]
     Active Substance: IRON

REACTIONS (2)
  - Cholelithiasis [Recovered/Resolved]
  - Gallbladder pain [Recovered/Resolved]

NARRATIVE: CASE EVENT DATE: 20170214
